FAERS Safety Report 5185025-3 (Version None)
Quarter: 2006Q4

REPORT INFORMATION
  Report Type: 
  Country: None (occurrence: None)
  Receive Date: 20061220
  Receipt Date: 20060522
  Transmission Date: 20070319
  Serious: No
  Sender: FDA-Public Use
  Company Number: US-GLAXOSMITHKLINE-A0606462A

PATIENT
  Age: 45 Year
  Sex: Female

DRUGS (2)
  1. NICODERM CQ [Suspect]
  2. NICODERM CQ [Suspect]
     Dates: end: 20060520

REACTIONS (2)
  - FATIGUE [None]
  - NICOTINE DEPENDENCE [None]
